FAERS Safety Report 12714896 (Version 2)
Quarter: 2016Q4

REPORT INFORMATION
  Report Type: Spontaneous
  Country: DE (occurrence: DE)
  Receive Date: 20160905
  Receipt Date: 20161202
  Transmission Date: 20170207
  Serious: Yes (Other)
  Sender: FDA-Public Use
  Company Number: ALCN2016DE005907

PATIENT
  Age: 81 Year
  Sex: Female

DRUGS (2)
  1. DUOTRAV POLYQUAD [Suspect]
     Active Substance: TIMOLOL MALEATE\TRAVOPROST
     Dosage: 1 DF, QD
     Route: 047
  2. DUOTRAV POLYQUAD [Suspect]
     Active Substance: TIMOLOL MALEATE\TRAVOPROST
     Indication: GLAUCOMA
     Dosage: 1 DF, BID
     Route: 047
     Dates: start: 2006, end: 20161122

REACTIONS (15)
  - Weight decreased [Unknown]
  - Cataract [Unknown]
  - Glaucoma [Unknown]
  - Condition aggravated [Unknown]
  - Intestinal haemorrhage [Unknown]
  - Nervousness [Unknown]
  - Posterior capsule opacification [Unknown]
  - Palpitations [Unknown]
  - Depression [Unknown]
  - Off label use [Unknown]
  - Thrombosis [Unknown]
  - Blindness [Recovered/Resolved]
  - Hypoaesthesia [Unknown]
  - Dizziness [Unknown]
  - Fatigue [Unknown]

NARRATIVE: CASE EVENT DATE: 20161119
